FAERS Safety Report 4852482-9 (Version None)
Quarter: 2005Q4

REPORT INFORMATION
  Report Type: 
  Country: None (occurrence: None)
  Receive Date: 20051213
  Receipt Date: 20051101
  Transmission Date: 20060501
  Serious: Yes (Hospitalization)
  Sender: FDA-Public Use
  Company Number: JP-BRISTOL-MYERS SQUIBB COMPANY-13188248

PATIENT
  Sex: Female

DRUGS (3)
  1. CARBOPLATIN [Suspect]
     Indication: UTERINE CANCER
     Route: 042
  2. TAXOL [Suspect]
     Indication: UTERINE CANCER
     Route: 042
  3. DOXORUBICIN [Suspect]
     Indication: UTERINE CANCER
     Route: 042

REACTIONS (1)
  - ILEUS [None]
